FAERS Safety Report 9590494 (Version 1)
Quarter: 2013Q4

REPORT INFORMATION
  Report Type: Spontaneous
  Country: US (occurrence: US)
  Receive Date: 20131003
  Receipt Date: 20131003
  Transmission Date: 20140711
  Serious: No
  Sender: FDA-Public Use
  Company Number: US-AMGEN-USASP2012077865

PATIENT
  Age: 56 Year
  Sex: Male

DRUGS (10)
  1. ENBREL [Suspect]
     Indication: PRODUCT USED FOR UNKNOWN INDICATION
     Dosage: 50 MG/ML, QWK
     Route: 058
  2. AZULFIDINE [Concomitant]
     Dosage: 500 MG, UNK
  3. LIPITOR [Concomitant]
     Dosage: 10 MG, UNK
  4. ARAVA [Concomitant]
     Dosage: 10 MG, UNK
  5. VITAMIN C                          /00008001/ [Concomitant]
     Dosage: 500 MG, UNK
  6. VITAMIN D                          /00107901/ [Concomitant]
     Dosage: 400 UNIT
  7. ASPIRIN [Concomitant]
     Dosage: 81 MG, UNK
  8. FOLIC ACID [Concomitant]
     Dosage: 20 MG, UNK
  9. METHYLPRED [Concomitant]
     Dosage: 8 MG, UNK
  10. MINERALS NOS [Concomitant]
     Dosage: UNK

REACTIONS (1)
  - Therapeutic response decreased [Unknown]
